FAERS Safety Report 25652368 (Version 1)
Quarter: 2025Q3

REPORT INFORMATION
  Report Type: Spontaneous
  Country: EU (occurrence: EU)
  Receive Date: 20250807
  Receipt Date: 20250807
  Transmission Date: 20251021
  Serious: Yes (Hospitalization, Other)
  Sender: RK PHARMA
  Company Number: EU-RK PHARMA, INC-20250700120

PATIENT

DRUGS (7)
  1. METFORMIN HYDROCHLORIDE [Suspect]
     Active Substance: METFORMIN HYDROCHLORIDE
     Indication: Type 2 diabetes mellitus
     Route: 065
  2. IRON [Suspect]
     Active Substance: IRON
     Indication: Iron deficiency anaemia
     Route: 042
  3. INSULIN NOS [Concomitant]
     Active Substance: INSULIN NOS
  4. CARBIDOPA AND LEVODOPA [Concomitant]
     Active Substance: CARBIDOPA\LEVODOPA
  5. DENOSUMAB [Concomitant]
     Active Substance: DENOSUMAB
     Indication: Osteoporosis
  6. CHOLECALCIFEROL [Concomitant]
     Active Substance: CHOLECALCIFEROL
     Indication: Supplementation therapy
  7. HUMAN RED BLOOD CELL [Concomitant]
     Active Substance: HUMAN RED BLOOD CELL

REACTIONS (3)
  - Hypophosphataemia [Recovered/Resolved]
  - Condition aggravated [Recovered/Resolved]
  - Lactic acidosis [Recovered/Resolved]
